FAERS Safety Report 25216977 (Version 1)
Quarter: 2025Q2

REPORT INFORMATION
  Report Type: Spontaneous
  Country: FR (occurrence: FR)
  Receive Date: 20250419
  Receipt Date: 20250419
  Transmission Date: 20250716
  Serious: Yes (Hospitalization, Other)
  Sender: AUROBINDO
  Company Number: FR-SA-2025SA093046

PATIENT
  Age: 81 Year
  Sex: Male
  Weight: 70.8 kg

DRUGS (4)
  1. OXALIPLATIN [Suspect]
     Active Substance: OXALIPLATIN
     Indication: Adenocarcinoma of colon
     Route: 042
     Dates: start: 20240904, end: 20241001
  2. LEVOLEUCOVORIN [Suspect]
     Active Substance: LEVOLEUCOVORIN
     Indication: Adenocarcinoma of colon
     Route: 042
     Dates: start: 20240904, end: 20241001
  3. ERBITUX [Suspect]
     Active Substance: CETUXIMAB
     Indication: Adenocarcinoma of colon
     Dosage: 467.5 MILLIGRAM, EVERY WEEK
     Route: 042
     Dates: start: 20240904, end: 20241008
  4. FLUOROURACIL [Suspect]
     Active Substance: FLUOROURACIL
     Indication: Adenocarcinoma of colon
     Route: 042
     Dates: start: 20240904, end: 20241003

REACTIONS (1)
  - Vascular device infection [Recovered/Resolved]

NARRATIVE: CASE EVENT DATE: 20241014
